FAERS Safety Report 5445377-3 (Version None)
Quarter: 2007Q3

REPORT INFORMATION
  Report Type: 
  Country: None (occurrence: None)
  Receive Date: 20070906
  Receipt Date: 20070530
  Transmission Date: 20080115
  Serious: No
  Sender: FDA-Public Use
  Company Number: A0653791A

PATIENT

DRUGS (1)
  1. REQUIP [Suspect]
     Indication: RESTLESS LEGS SYNDROME

REACTIONS (1)
  - MYALGIA [None]
